FAERS Safety Report 6231351-6 (Version None)
Quarter: 2009Q2

REPORT INFORMATION
  Report Type: 
  Country: None (occurrence: None)
  Receive Date: 20090616
  Receipt Date: 20090604
  Transmission Date: 20091009
  Serious: Yes (Other)
  Sender: FDA-Public Use
  Company Number: GB-AVENTIS-200913258EU

PATIENT
  Age: 46 Year
  Sex: Female

DRUGS (3)
  1. FRUMIL [Suspect]
     Route: 048
     Dates: start: 19820101
  2. ANTIHISTAMINES [Concomitant]
  3. ANTIBIOTICS [Concomitant]

REACTIONS (1)
  - MULTIPLE MYELOMA [None]
